FAERS Safety Report 8611849 (Version 2)
Quarter: 2013Q2

REPORT INFORMATION
  Report Type: Spontaneous
  Country: US (occurrence: US)
  Receive Date: 20120613
  Receipt Date: 20130618
  Transmission Date: 20140414
  Serious: Yes (Disabling)
  Sender: FDA-Public Use
  Company Number: US-ASTRAZENECA-2012SE35796

PATIENT
  Age: 62 Year
  Sex: Female

DRUGS (9)
  1. NEXIUM [Suspect]
     Indication: GASTRIC DISORDER
     Dosage: DAILY
     Route: 048
  2. PROTONIX [Concomitant]
  3. PREVACID OTC [Concomitant]
  4. ZANTAC [Concomitant]
  5. TAGAMENT [Concomitant]
  6. ALKA SELZER [Concomitant]
     Dosage: 2 TABLETS IN PACKAGE 3-4 TIME A WEEK
  7. MILK OF MAGNESIA [Concomitant]
  8. VITAMIN [Concomitant]
  9. FOLIC ACID [Concomitant]

REACTIONS (12)
  - Fall [Unknown]
  - Bone density decreased [Unknown]
  - Osteoporosis [Unknown]
  - Generalised anxiety disorder [Unknown]
  - Arthritis [Unknown]
  - Bone disorder [Unknown]
  - Multiple fractures [Unknown]
  - Cardiac disorder [Unknown]
  - Gallbladder disorder [Unknown]
  - Poor quality sleep [Unknown]
  - Self-injurious ideation [Unknown]
  - Depression [Unknown]
